FAERS Safety Report 5007252-8 (Version None)
Quarter: 2006Q2

REPORT INFORMATION
  Report Type: 
  Country: None (occurrence: None)
  Receive Date: 20060517
  Receipt Date: 20060516
  Transmission Date: 20061013
  Serious: Yes (Other)
  Sender: FDA-Public Use
  Company Number: 220717

PATIENT
  Age: 54 Year
  Sex: Female
  Weight: 70.7 kg

DRUGS (16)
  1. HERCEPTIN [Suspect]
     Indication: BREAST CANCER
     Dosage: 136 UNK, 1/WEEK, INTRAVENOUS
     Route: 042
     Dates: start: 20050517, end: 20050801
  2. DOXORUBICIN HCL [Suspect]
     Indication: BREAST CANCER
     Dosage: 105 MG, INTRAVENOUS; SEE IMAGE
     Route: 042
     Dates: start: 20041015, end: 20041129
  3. DOXORUBICIN HCL [Suspect]
     Indication: BREAST CANCER
     Dosage: 105 MG, INTRAVENOUS; SEE IMAGE
     Route: 042
     Dates: start: 20040924
  4. CYCLOPHOSPHAMIDE [Suspect]
     Indication: BREAST CANCER
     Dosage: 1050 MG, INTRAVENOUS; SEE IMAGE
     Route: 042
     Dates: start: 20041015, end: 20041129
  5. CYCLOPHOSPHAMIDE [Suspect]
     Indication: BREAST CANCER
     Dosage: 1050 MG, INTRAVENOUS; SEE IMAGE
     Route: 042
     Dates: start: 20040924
  6. PACLITAXEL [Suspect]
     Indication: BREAST CANCER
  7. TOPROL-XL [Concomitant]
  8. ALLEGRA [Concomitant]
  9. SINGULAIR [Concomitant]
  10. AMBIEN [Concomitant]
  11. CALCIUM (CALCIUM NOS) [Concomitant]
  12. MULTIVITAMIN (MULTIVITAMINS NOS) [Concomitant]
  13. NASACORT [Concomitant]
  14. LEXAPRO [Concomitant]
  15. PEPCID [Concomitant]
  16. XANAX [Concomitant]

REACTIONS (2)
  - PAIN [None]
  - POLYMYOSITIS [None]
